FAERS Safety Report 22302382 (Version 1)
Quarter: 2023Q2

REPORT INFORMATION
  Report Type: Spontaneous
  Country: CN (occurrence: None)
  Receive Date: 20230510
  Receipt Date: 20230510
  Transmission Date: 20230721
  Serious: Yes (Hospitalization)
  Sender: FDA-Public Use
  Company Number: CN-ROCHE-3345968

PATIENT
  Age: 45 Year
  Sex: Male
  Weight: 69 kg

DRUGS (4)
  1. OBINUTUZUMAB [Suspect]
     Active Substance: OBINUTUZUMAB
     Indication: Non-Hodgkin^s lymphoma
     Route: 042
     Dates: start: 20230330, end: 20230330
  2. CYCLOPHOSPHAMIDE [Suspect]
     Active Substance: CYCLOPHOSPHAMIDE
     Indication: Non-Hodgkin^s lymphoma
     Route: 040
     Dates: start: 20230330, end: 20230331
  3. EPIRUBICIN [Suspect]
     Active Substance: EPIRUBICIN
     Indication: Non-Hodgkin^s lymphoma
     Route: 040
     Dates: start: 20230330, end: 20230401
  4. VINCRISTINE [Suspect]
     Active Substance: VINCRISTINE
     Indication: Non-Hodgkin^s lymphoma
     Route: 040
     Dates: start: 20230330, end: 20230331

REACTIONS (1)
  - Myelosuppression [Recovering/Resolving]

NARRATIVE: CASE EVENT DATE: 20230410
